FAERS Safety Report 14100896 (Version 1)
Quarter: 2017Q4

REPORT INFORMATION
  Report Type: Spontaneous
  Country: US (occurrence: None)
  Receive Date: 20171017
  Receipt Date: 20171017
  Transmission Date: 20180321
  Serious: Yes (Life-Threatening)
  Sender: FDA-Public Use
  Company Number: None

PATIENT
  Age: 87 Year
  Sex: Male
  Weight: 65.77 kg

DRUGS (14)
  1. VITAMIN B12 [Concomitant]
     Active Substance: CYANOCOBALAMIN
  2. RAMIPRIL. [Concomitant]
     Active Substance: RAMIPRIL
  3. L-THYROXINE (SYNTHROID) [Concomitant]
  4. METOLAZONE. [Concomitant]
     Active Substance: METOLAZONE
  5. PRAVASTATIN. [Concomitant]
     Active Substance: PRAVASTATIN
  6. VITAMIN E [Concomitant]
     Active Substance: .ALPHA.-TOCOPHEROL
  7. SPIRONOLACTONE. [Suspect]
     Active Substance: SPIRONOLACTONE
     Indication: BLOOD PRESSURE ABNORMAL
     Dosage: 1 PILL 3 TIMES DAILY MOUTH
     Route: 048
     Dates: start: 20170808, end: 20170810
  8. BUMETANIDE. [Concomitant]
     Active Substance: BUMETANIDE
  9. VITAMIN C [Concomitant]
     Active Substance: ASCORBIC ACID
  10. GINSANA [Concomitant]
  11. FISH OIL [Concomitant]
     Active Substance: FISH OIL
  12. FERROUS SULFATE. [Concomitant]
     Active Substance: FERROUS SULFATE
  13. MG PLUS PROTEIN [Concomitant]
  14. CALCIUM [Concomitant]
     Active Substance: CALCIUM

REACTIONS (1)
  - Pyrexia [None]

NARRATIVE: CASE EVENT DATE: 20170808
